FAERS Safety Report 9805332 (Version 2)
Quarter: 2014Q1

REPORT INFORMATION
  Report Type: Spontaneous
  Country: CH (occurrence: CH)
  Receive Date: 20140109
  Receipt Date: 20140109
  Transmission Date: 20141002
  Serious: Yes (Death, Hospitalization, Other)
  Sender: FDA-Public Use
  Company Number: CH-ROCHE-1289374

PATIENT
  Age: 62 Year
  Sex: Female
  Weight: 68 kg

DRUGS (2)
  1. AVASTIN [Suspect]
     Indication: OVARIAN CANCER
     Route: 042
     Dates: start: 20121219, end: 20130522
  2. TOPOTECAN [Concomitant]
     Indication: OVARIAN CANCER
     Route: 065
     Dates: start: 201212, end: 201305

REACTIONS (4)
  - Female genital tract fistula [Not Recovered/Not Resolved]
  - Disease progression [Fatal]
  - Deep vein thrombosis [Unknown]
  - Cardiac arrest [Fatal]
